FAERS Safety Report 5524657-7 (Version None)
Quarter: 2007Q4

REPORT INFORMATION
  Report Type: 
  Country: None (occurrence: None)
  Receive Date: 20071123
  Receipt Date: 20071120
  Transmission Date: 20080405
  Serious: Yes (Hospitalization)
  Sender: FDA-Public Use
  Company Number: JP-SHR-JP-2007-043578

PATIENT
  Age: 32 Year
  Sex: Male

DRUGS (9)
  1. BETASERON [Suspect]
     Indication: MULTIPLE SCLEROSIS
     Dosage: 8 MIU, EVERY 2D
     Route: 058
     Dates: start: 20051102
  2. FAMOTIDINE [Concomitant]
     Indication: GASTRITIS PROPHYLAXIS
     Dosage: 20 MG, 1X/DAY
     Route: 048
     Dates: start: 20051108
  3. LENDORMIN [Concomitant]
     Indication: INSOMNIA
     Dosage: .25 MG, 1X/DAY
     Route: 048
     Dates: start: 20051115
  4. DEPAKENE [Concomitant]
     Indication: MULTIPLE SCLEROSIS
     Dosage: 400 MG, 1X/DAY
     Route: 048
     Dates: start: 20051117
  5. DEPAS [Concomitant]
     Indication: INSOMNIA
     Dosage: 1.5 MG, 1X/DAY
     Dates: start: 20051117
  6. RHYTHMY [Concomitant]
     Indication: INSOMNIA
     Dosage: 2 MG, 1X/DAY
     Route: 048
     Dates: start: 20060828
  7. MYSLEE [Concomitant]
     Indication: INSOMNIA
     Dosage: 10 MG, 1X/DAY
     Route: 048
     Dates: start: 20070205
  8. MYONAL [Concomitant]
     Indication: MYALGIA
     Dosage: 150 MG, 1X/DAY
     Route: 048
     Dates: start: 20070521
  9. AMITRIPTYLINE HYDROCHLORIDE [Concomitant]
     Dosage: 30 MG, 1X/DAY
     Route: 048

REACTIONS (1)
  - TONSILLITIS [None]
